FAERS Safety Report 6132712-6 (Version None)
Quarter: 2009Q1

REPORT INFORMATION
  Report Type: 
  Country: None (occurrence: None)
  Receive Date: 20090324
  Receipt Date: 20090324
  Transmission Date: 20090719
  Serious: Yes (Other)
  Sender: FDA-Public Use
  Company Number: None

PATIENT
  Sex: Female

DRUGS (2)
  1. PHENERGAN [Suspect]
     Indication: BACK INJURY
     Dosage: 25MG IM
     Route: 030
  2. STADOL [Suspect]
     Indication: BACK INJURY
     Dosage: 2 MG IM
     Route: 030

REACTIONS (4)
  - CRYING [None]
  - DISORIENTATION [None]
  - EMOTIONAL DISTRESS [None]
  - FEELING ABNORMAL [None]
